FAERS Safety Report 18969002 (Version 3)
Quarter: 2021Q1

REPORT INFORMATION
  Report Type: Spontaneous
  Country: ES (occurrence: ES)
  Receive Date: 20210304
  Receipt Date: 20210317
  Transmission Date: 20210420
  Serious: Yes (Other)
  Sender: FDA-Public Use
  Company Number: ES-PFIZER INC-2021203030

PATIENT
  Age: 52 Year
  Sex: Female

DRUGS (6)
  1. AUGMENTINE [AMOXICILLIN TRIHYDRATE;CLAVULANATE POTASSIUM] [Concomitant]
     Active Substance: AMOXICILLIN\CLAVULANATE POTASSIUM
     Indication: ACUTE SINUSITIS
     Dosage: 1 DF, 2X/DAY (FREQ:12 H)
     Dates: start: 20210201
  2. ALPRAZOLAM CINFA [Concomitant]
  3. DOMPERIDONA GAMIR [Concomitant]
     Indication: ABDOMINAL PAIN
     Dosage: 10 MG, 3X/DAY (FREQ:8 H)
     Dates: start: 20191018
  4. CELEBREX [Suspect]
     Active Substance: CELECOXIB
     Indication: MUSCULOSKELETAL PAIN
     Dosage: 200 MG, 1X/DAY
     Dates: start: 20201202, end: 20210209
  5. PREMAX [PREGABALIN] [Concomitant]
     Indication: MUSCULOSKELETAL PAIN
     Dosage: 75 MG, 2X/DAY (FREQ:12 H)
     Dates: start: 20201201
  6. ZALDIAR [Concomitant]
     Active Substance: ACETAMINOPHEN\TRAMADOL HYDROCHLORIDE
     Indication: ACUTE SINUSITIS
     Dosage: 1 DF, 1X/DAY (ONE TABLET EVERY 24 HOURS)
     Dates: start: 20210201

REACTIONS (1)
  - Hypertensive crisis [Recovering/Resolving]

NARRATIVE: CASE EVENT DATE: 20210201
